FAERS Safety Report 7020442-8 (Version None)
Quarter: 2010Q3

REPORT INFORMATION
  Report Type: 
  Country: None (occurrence: None)
  Receive Date: 20100929
  Receipt Date: 20100920
  Transmission Date: 20110219
  Serious: Yes (Hospitalization)
  Sender: FDA-Public Use
  Company Number: BR-ASTRAZENECA-2010SE44420

PATIENT
  Age: 58 Year
  Sex: Female
  Weight: 62 kg

DRUGS (7)
  1. SYMBICORT [Suspect]
     Indication: ASTHMA
     Dosage: 320/9 MCG, 320/9 MCG PRN
     Route: 055
     Dates: start: 20050101, end: 20100901
  2. SYMBICORT [Suspect]
     Dosage: 320/9 MCG, 320/9 MCG PRN
     Route: 055
     Dates: start: 20100901
  3. ANADOR [Concomitant]
     Indication: PAIN
     Route: 048
     Dates: start: 20100901
  4. CITALOPRAM HYDROBROMIDE [Concomitant]
     Indication: DEPRESSION
     Route: 048
     Dates: start: 20100301
  5. CITALOPRAM HYDROBROMIDE [Concomitant]
     Indication: PANIC DISORDER
     Route: 048
     Dates: start: 20100301
  6. LORAX [Concomitant]
     Indication: DEPRESSION
     Route: 048
     Dates: start: 20100301
  7. LORAX [Concomitant]
     Indication: PANIC DISORDER
     Route: 048
     Dates: start: 20100301

REACTIONS (7)
  - DRUG DOSE OMISSION [None]
  - DYSPNOEA [None]
  - FALL [None]
  - MUSCULOSKELETAL PAIN [None]
  - NASOPHARYNGITIS [None]
  - UPPER LIMB FRACTURE [None]
  - WHEEZING [None]
